FAERS Safety Report 25261596 (Version 1)
Quarter: 2025Q2

REPORT INFORMATION
  Report Type: Spontaneous
  Country: IT (occurrence: IT)
  Receive Date: 20250502
  Receipt Date: 20250502
  Transmission Date: 20250717
  Serious: Yes (Death, Other)
  Sender: INVENTIA HEALTHCARE LTD
  Company Number: IT-IHL-000666

PATIENT
  Age: 44 Year
  Sex: Female

DRUGS (7)
  1. COCAINE [Suspect]
     Active Substance: COCAINE
     Indication: Product used for unknown indication
     Route: 045
  2. ALCOHOL [Suspect]
     Active Substance: ALCOHOL
     Indication: Product used for unknown indication
     Route: 065
  3. BENZOYLECGONINE [Suspect]
     Active Substance: BENZOYLECGONINE
     Indication: Product used for unknown indication
     Route: 065
  4. ECGONINE METHYL ESTER [Suspect]
     Active Substance: ECGONINE METHYL ESTER
     Indication: Product used for unknown indication
     Route: 065
  5. COCAETHYLENE [Suspect]
     Active Substance: COCAETHYLENE
     Indication: Product used for unknown indication
     Route: 065
  6. NORFLUOXETINE [Suspect]
     Active Substance: NORFLUOXETINE
     Indication: Product used for unknown indication
     Route: 065
  7. FLUOXETINE HYDROCHLORIDE [Suspect]
     Active Substance: FLUOXETINE HYDROCHLORIDE
     Indication: Product used for unknown indication
     Route: 045

REACTIONS (5)
  - Toxicity to various agents [Fatal]
  - Cardiac failure acute [Fatal]
  - Pulmonary oedema [Fatal]
  - Incorrect route of product administration [Fatal]
  - Intentional product misuse [Fatal]
